FAERS Safety Report 20684018 (Version 3)
Quarter: 2022Q2

REPORT INFORMATION
  Report Type: Spontaneous
  Country: FR (occurrence: FR)
  Receive Date: 20220407
  Receipt Date: 20220428
  Transmission Date: 20220721
  Serious: Yes (Other)
  Sender: FDA-Public Use
  Company Number: FR-BAXTER-2022BAX006226

PATIENT
  Age: 2 Year
  Sex: Male

DRUGS (12)
  1. SODIUM CHLORIDE [Suspect]
     Active Substance: SODIUM CHLORIDE
     Indication: Parenteral nutrition
     Route: 042
  2. SMOFLIPID [Suspect]
     Active Substance: FISH OIL\MEDIUM-CHAIN TRIGLYCERIDES\OLIVE OIL\SOYBEAN OIL
     Indication: Parenteral nutrition
     Route: 042
  3. DEXTROSE [Suspect]
     Active Substance: DEXTROSE
     Indication: Parenteral nutrition
     Dosage: GLUCOSE 50 PERCENT
     Route: 042
  4. ALANINE\ARGININE\ASPARTIC ACID\CYSTEINE HYDROCHLORIDE\GLUTAMIC ACID\GL [Suspect]
     Active Substance: ALANINE\ARGININE\ASPARTIC ACID\CYSTEINE HYDROCHLORIDE\GLUTAMIC ACID\GLYCINE\HISTIDINE\ISOLEUCINE\LEU
     Indication: Parenteral nutrition
     Route: 042
  5. WATER FOR INJECTION [Suspect]
     Active Substance: WATER
     Indication: Parenteral nutrition
     Dosage: PHARMACEUTICAL DOSE FORM (FREE TEXT):SOLUTION FOR INFUSION
     Route: 042
  6. POTASSIUM PHOSPHATE, MONOBASIC [Suspect]
     Active Substance: POTASSIUM PHOSPHATE, MONOBASIC
     Indication: Parenteral nutrition
     Route: 042
  7. PHYTONADIONE [Suspect]
     Active Substance: PHYTONADIONE
     Indication: Parenteral nutrition
     Route: 042
  8. MAGNESIUM CHLORIDE [Suspect]
     Active Substance: MAGNESIUM CHLORIDE
     Indication: Parenteral nutrition
     Route: 042
  9. ZINC [Suspect]
     Active Substance: ZINC
     Indication: Parenteral nutrition
     Route: 042
  10. VITAMINS [Suspect]
     Active Substance: VITAMINS
     Indication: Parenteral nutrition
     Dosage: PHARMACEUTICAL DOSE FORM (FREE TEXT):POWDER FOR SOLUTION FOR INJECTION
     Route: 042
  11. CALCIUM GLUCONATE [Suspect]
     Active Substance: CALCIUM GLUCONATE
     Indication: Parenteral nutrition
     Route: 042
  12. POTASSIUM CHLORIDE [Suspect]
     Active Substance: POTASSIUM CHLORIDE
     Indication: Parenteral nutrition
     Route: 042

REACTIONS (3)
  - Liver disorder [Unknown]
  - Product administration error [Unknown]
  - Product prescribing error [Unknown]
